FAERS Safety Report 12484930 (Version 1)
Quarter: 2016Q2

REPORT INFORMATION
  Report Type: Spontaneous
  Country: US (occurrence: None)
  Receive Date: 20160620
  Receipt Date: 20160620
  Transmission Date: 20160815
  Serious: Yes (Disabling)
  Sender: FDA-Public Use
  Company Number: None

PATIENT
  Age: 59 Year
  Sex: Female
  Weight: 52.62 kg

DRUGS (8)
  1. GANDOLINIUM [Suspect]
     Active Substance: GADOLINIUM
  2. ASPIRIN. [Concomitant]
     Active Substance: ASPIRIN
  3. OPC-34712 [Concomitant]
     Active Substance: BREXPIPRAZOLE
  4. MULTIVITAMIN [Concomitant]
     Active Substance: VITAMINS
  5. AMBIEN CR [Concomitant]
     Active Substance: ZOLPIDEM TARTRATE
  6. VITAMIN E [Concomitant]
     Active Substance: .ALPHA.-TOCOPHEROL
  7. CALCIUM [Concomitant]
     Active Substance: CALCIUM
  8. COQ 10 [Concomitant]
     Active Substance: UBIDECARENONE

REACTIONS (12)
  - Memory impairment [None]
  - Headache [None]
  - Arthralgia [None]
  - Ocular hyperaemia [None]
  - Joint swelling [None]
  - Bone pain [None]
  - Dysphagia [None]
  - Deposit eye [None]
  - Eye pruritus [None]
  - Conjunctivitis [None]
  - No therapeutic response [None]
  - Joint stiffness [None]
